FAERS Safety Report 6497433-9 (Version None)
Quarter: 2009Q4

REPORT INFORMATION
  Report Type: 
  Country: None (occurrence: None)
  Receive Date: 20091211
  Receipt Date: 20091106
  Transmission Date: 20100525
  Serious: Yes (Hospitalization, Other)
  Sender: FDA-Public Use
  Company Number: 230216J09BRA

PATIENT
  Age: 48 Year
  Sex: Female

DRUGS (9)
  1. REBIF [Suspect]
     Indication: RELAPSING-REMITTING MULTIPLE SCLEROSIS
     Dosage: 22 MCG, 3 IN 1 WEEKS
     Dates: start: 20020425
  2. PROPANOLOL (PROPRANOLOL /00030001/) [Concomitant]
  3. BENICAR [Concomitant]
  4. BETALOR (AMLODIPINE BESILATE) [Concomitant]
  5. BETALOR (ATENOLOL) [Concomitant]
  6. LASIX (FUROSEMIDE /00032601/) [Concomitant]
  7. EFFEXOR [Concomitant]
  8. OLCADIL (CLOXAZOLAM) [Concomitant]
  9. ACETAMINOPHEN [Concomitant]

REACTIONS (3)
  - ABDOMINAL DISTENSION [None]
  - ABDOMINAL PAIN UPPER [None]
  - MULTIPLE SCLEROSIS RELAPSE [None]
